FAERS Safety Report 8825594 (Version 3)
Quarter: 2012Q4

REPORT INFORMATION
  Report Type: 
  Country: DE (occurrence: DE)
  Receive Date: 20121004
  Receipt Date: 20121101
  Transmission Date: 20130627
  Serious: Yes (Hospitalization, Other)
  Sender: FDA-Public Use
  Company Number: DE-PFIZER INC-2012191983

PATIENT
  Age: 45 Year
  Sex: Female
  Weight: 70 kg

DRUGS (2)
  1. CHAMPIX [Suspect]
     Indication: SMOKING CESSATION THERAPY
     Dosage: UNK
     Dates: start: 20120623, end: 20120721
  2. CHAMPIX [Suspect]
     Dosage: UNK
     Dates: start: 20120722, end: 20120724

REACTIONS (19)
  - Blood pressure increased [Not Recovered/Not Resolved]
  - Hepatic enzyme increased [Unknown]
  - Bradycardia [Unknown]
  - Blood potassium abnormal [Unknown]
  - Dyspnoea [Unknown]
  - Dehydration [Unknown]
  - Palpitations [Unknown]
  - Hepatic congestion [Unknown]
  - Oedema [Unknown]
  - Oedema peripheral [Not Recovered/Not Resolved]
  - Face oedema [Not Recovered/Not Resolved]
  - Localised oedema [Not Recovered/Not Resolved]
  - General physical health deterioration [Recovered/Resolved]
  - Chest discomfort [Unknown]
  - Malaise [Unknown]
  - Sensation of pressure [Unknown]
  - Herpes zoster [Unknown]
  - Headache [Unknown]
  - Lymphadenopathy [Unknown]
